FAERS Safety Report 26024056 (Version 1)
Quarter: 2025Q4

REPORT INFORMATION
  Report Type: Spontaneous
  Country: US (occurrence: US)
  Receive Date: 20251111
  Receipt Date: 20251111
  Transmission Date: 20260119
  Serious: No
  Sender: SANDOZ
  Company Number: US-SANDOZ-SDZ2025US082676

PATIENT
  Age: 57 Year
  Sex: Female

DRUGS (1)
  1. ESTRADIOL [Suspect]
     Active Substance: ESTRADIOL
     Indication: Product used for unknown indication
     Dosage: STRENGTH: 0.05 MG / 1 10
     Route: 062

REACTIONS (3)
  - Incorrect dose administered by device [Unknown]
  - Poor quality device used [Unknown]
  - Device adhesion issue [Unknown]
